FAERS Safety Report 7048573-7 (Version None)
Quarter: 2010Q4

REPORT INFORMATION
  Report Type: 
  Country: None (occurrence: None)
  Receive Date: 20101008
  Receipt Date: 20100905
  Transmission Date: 20110411
  Serious: Yes (Disabling, Other)
  Sender: FDA-Public Use
  Company Number: ACO_02444_2010

PATIENT
  Sex: Female

DRUGS (1)
  1. AMPYRA [Suspect]
     Indication: PRODUCT USED FOR UNKNOWN INDICATION
     Dosage: (DF)
     Dates: start: 20100728

REACTIONS (4)
  - ABASIA [None]
  - ARTHRALGIA [None]
  - HYPOAESTHESIA [None]
  - MUSCULAR WEAKNESS [None]
